FAERS Safety Report 13733832 (Version 1)
Quarter: 2017Q3

REPORT INFORMATION
  Report Type: Spontaneous
  Country: US (occurrence: US)
  Receive Date: 20170707
  Receipt Date: 20170707
  Transmission Date: 20171127
  Serious: Yes (Other)
  Sender: FDA-Public Use
  Company Number: US-ALLERGAN-1728359US

PATIENT
  Sex: Male

DRUGS (1)
  1. REFRESH PLUS [Suspect]
     Active Substance: CARBOXYMETHYLCELLULOSE SODIUM
     Indication: DRY EYE
     Dosage: WHOLE TUBE
     Route: 047

REACTIONS (3)
  - Intentional product use issue [Unknown]
  - Hypersomnia [Unknown]
  - Neoplasm malignant [Unknown]
